FAERS Safety Report 6549880-4 (Version None)
Quarter: 2010Q1

REPORT INFORMATION
  Report Type: 
  Country: None (occurrence: None)
  Receive Date: 20100119
  Receipt Date: 20100105
  Transmission Date: 20100710
  Serious: Yes (Hospitalization)
  Sender: FDA-Public Use
  Company Number: CH-001179

PATIENT
  Sex: Male

DRUGS (6)
  1. MINIRIN [Suspect]
     Indication: DIABETES INSIPIDUS
     Dosage: (0.1 MG ORAL)
     Route: 048
     Dates: end: 20090507
  2. CIPRALEX /01588502/ (CIPRALEX) 1 DF (NOT SPECIFIED) [Suspect]
     Indication: DEPRESSION
     Dosage: (1 DF ORAL)
     Route: 048
     Dates: end: 20090508
  3. BELOC ZOK [Concomitant]
  4. PLAVIX [Concomitant]
  5. ASPIRIN [Concomitant]
  6. NEO-MERCAZOLE TAB [Concomitant]

REACTIONS (3)
  - HYPONATRAEMIA [None]
  - MALAISE [None]
  - NAUSEA [None]
